FAERS Safety Report 8579050-X (Version None)
Quarter: 2012Q3

REPORT INFORMATION
  Report Type: 
  Country: None (occurrence: None)
  Receive Date: 20120808
  Receipt Date: 20120731
  Transmission Date: 20120928
  Serious: Yes (Death, Hospitalization, Other)
  Sender: FDA-Public Use
  Company Number: US-CELGENEUS-163-21880-12052417

PATIENT
  Sex: Male

DRUGS (14)
  1. VALTREX [Concomitant]
     Dosage: 500 MILLIGRAM
     Route: 048
     Dates: start: 20110901
  2. LASIX [Concomitant]
     Route: 065
     Dates: start: 20120401, end: 20120401
  3. VITAMIN B-12 [Concomitant]
     Dosage: 1000
     Route: 048
  4. BACTRIM [Concomitant]
     Dosage: 1
     Route: 048
     Dates: start: 20110901
  5. HYDROMORPHONE HYDROCHLORIDE [Concomitant]
     Dosage: 2 MILLIGRAM
     Route: 048
  6. DEXAMETHASONE [Concomitant]
     Route: 065
     Dates: start: 20120401
  7. COLACE [Concomitant]
     Dosage: 100 MILLIGRAM
     Route: 048
  8. REVLIMID [Suspect]
     Dosage: 25 MILLIGRAM
     Route: 048
     Dates: start: 20120317, end: 20120401
  9. ASPIRIN [Concomitant]
     Indication: PROPHYLAXIS
     Dosage: 81 MILLIGRAM
     Route: 048
     Dates: start: 20120301
  10. LYRICA [Concomitant]
     Dosage: 100 MILLIGRAM
     Route: 048
     Dates: start: 20120101
  11. PEPCID AC [Concomitant]
     Dosage: 20 MILLIGRAM
     Route: 048
  12. VITAMIN D [Concomitant]
     Dosage: 1000 UNIT
     Route: 048
  13. VELCADE [Concomitant]
     Dosage: 1.3 MILLIGRAM/SQ. METER
     Route: 065
     Dates: start: 20120401
  14. PERCOCET [Concomitant]
     Indication: PAIN
     Dosage: 1-2
     Route: 048
     Dates: start: 20120101

REACTIONS (2)
  - PNEUMONIA [None]
  - MULTIPLE MYELOMA [None]
